FAERS Safety Report 23588141 (Version 4)
Quarter: 2024Q4

REPORT INFORMATION
  Report Type: Report from Study
  Country: US (occurrence: US)
  Receive Date: 20240302
  Receipt Date: 20241018
  Transmission Date: 20250115
  Serious: No
  Sender: ROCHE
  Company Number: US-ROCHE-3481404

PATIENT
  Age: 52 Year
  Sex: Female

DRUGS (5)
  1. RITUXIMAB [Suspect]
     Active Substance: RITUXIMAB
     Indication: Product used for unknown indication
     Route: 065
  2. CYCLOPHOSPHAMIDE [Concomitant]
     Active Substance: CYCLOPHOSPHAMIDE
  3. DOXORUBICIN [Concomitant]
     Active Substance: DOXORUBICIN
  4. VINCRISTINE [Concomitant]
     Active Substance: VINCRISTINE
  5. PREDNISONE [Concomitant]
     Active Substance: PREDNISONE

REACTIONS (3)
  - Nausea [Recovered/Resolved]
  - Fatigue [Recovered/Resolved]
  - Drug ineffective [Unknown]

NARRATIVE: CASE EVENT DATE: 20220201
